FAERS Safety Report 6555661-8 (Version None)
Quarter: 2010Q1

REPORT INFORMATION
  Report Type: 
  Country: None (occurrence: None)
  Receive Date: 20100128
  Receipt Date: 20100118
  Transmission Date: 20100710
  Serious: Yes (Hospitalization)
  Sender: FDA-Public Use
  Company Number: PHHO2009JP15169

PATIENT
  Sex: Female
  Weight: 39 kg

DRUGS (2)
  1. EXELON [Suspect]
     Indication: DEMENTIA ALZHEIMER'S TYPE
     Dosage: OPEN LABEL
     Route: 062
     Dates: start: 20081211, end: 20090404
  2. EXELON [Suspect]
     Dosage: DL4 (18 MG)
     Route: 062
     Dates: start: 20090404, end: 20091207

REACTIONS (11)
  - ABASIA [None]
  - ARTHRALGIA [None]
  - CONTUSION [None]
  - FAECAL INCONTINENCE [None]
  - FALL [None]
  - FEMORAL NECK FRACTURE [None]
  - GAIT DISTURBANCE [None]
  - JOINT ARTHROPLASTY [None]
  - PURPURA [None]
  - SPINAL COMPRESSION FRACTURE [None]
  - URINARY INCONTINENCE [None]
